FAERS Safety Report 5928015-2 (Version None)
Quarter: 2008Q4

REPORT INFORMATION
  Report Type: 
  Country: None (occurrence: None)
  Receive Date: 20081021
  Receipt Date: 20081010
  Transmission Date: 20090506
  Serious: No
  Sender: FDA-Public Use
  Company Number: APP200800947

PATIENT
  Age: 73 Year
  Sex: Male

DRUGS (1)
  1. DIPRIVAN [Suspect]
     Indication: ANAESTHESIA
     Dates: start: 20080930, end: 20080930

REACTIONS (2)
  - CONFUSIONAL STATE [None]
  - GAIT DISTURBANCE [None]
